FAERS Safety Report 16342646 (Version 3)
Quarter: 2021Q2

REPORT INFORMATION
  Report Type: Report from Study
  Country: FR (occurrence: FR)
  Receive Date: 20190522
  Receipt Date: 20210625
  Transmission Date: 20210716
  Serious: Yes (Death, Other)
  Sender: FDA-Public Use
  Company Number: FR-JAZZ-2019-FR-006936

PATIENT
  Age: 55 Year
  Sex: Male
  Weight: 65 kg

DRUGS (1)
  1. DEFITELIO [Suspect]
     Active Substance: DEFIBROTIDE SODIUM
     Indication: VENOOCCLUSIVE DISEASE
     Dosage: 24.48 MILLIGRAM/KILOGRAM/DAY
     Route: 042
     Dates: start: 20180801, end: 20180803

REACTIONS (4)
  - Renal failure [Fatal]
  - Off label use [Unknown]
  - Haemophagocytic lymphohistiocytosis [Fatal]
  - Hyperthermia [Fatal]

NARRATIVE: CASE EVENT DATE: 20180801
